FAERS Safety Report 24235662 (Version 2)
Quarter: 2024Q3

REPORT INFORMATION
  Report Type: Report from Study
  Country: US (occurrence: US)
  Receive Date: 20240822
  Receipt Date: 20240913
  Transmission Date: 20241017
  Serious: Yes (Other)
  Sender: ABBVIE
  Company Number: US-ABBVIE-5885242

PATIENT
  Age: 58 Year
  Sex: Female
  Weight: 108.41 kg

DRUGS (3)
  1. HUMIRA [Suspect]
     Active Substance: ADALIMUMAB
     Indication: Ankylosing spondylitis
     Route: 058
     Dates: start: 20230126, end: 20240312
  2. DICLOFENAC [Concomitant]
     Active Substance: DICLOFENAC
     Indication: Ankylosing spondylitis
  3. METHOTREXATE [Concomitant]
     Active Substance: METHOTREXATE
     Indication: Ankylosing spondylitis
     Route: 065

REACTIONS (5)
  - Spinal fusion surgery [Unknown]
  - Therapeutic product effect incomplete [Unknown]
  - Ankylosing spondylitis [Not Recovered/Not Resolved]
  - Arthralgia [Not Recovered/Not Resolved]
  - Exostosis [Unknown]

NARRATIVE: CASE EVENT DATE: 20220704
